FAERS Safety Report 17908666 (Version 3)
Quarter: 2020Q4

REPORT INFORMATION
  Report Type: Spontaneous
  Country: TR (occurrence: TR)
  Receive Date: 20200617
  Receipt Date: 20201007
  Transmission Date: 20210113
  Serious: Yes (Other)
  Sender: FDA-Public Use
  Company Number: TR-BAYER-2020-115609

PATIENT
  Age: 25 Year
  Sex: Female
  Weight: 54 kg

DRUGS (5)
  1. YASMIN [Suspect]
     Active Substance: DROSPIRENONE\ETHINYL ESTRADIOL
     Indication: OVARIAN CYST
     Dosage: UNK
     Route: 048
  2. YASMIN [Suspect]
     Active Substance: DROSPIRENONE\ETHINYL ESTRADIOL
     Indication: OVARIAN CYST
     Dosage: UNK
     Route: 048
     Dates: start: 2010
  3. PRIMOLUT N [Suspect]
     Active Substance: NORETHINDRONE
     Indication: OVARIAN CYST
     Dosage: UNK
     Route: 048
  4. PRIMOLUT N [Suspect]
     Active Substance: NORETHINDRONE
     Indication: OVARIAN CYST
     Route: 048
  5. CYCLO-PROGYNOVA [ESTRADIOL VALERATE\NORGESTREL] [Suspect]
     Active Substance: ESTRADIOL VALERATE\NORGESTREL
     Indication: OVARIAN CYST
     Dosage: UNK
     Route: 048

REACTIONS (12)
  - Vaginal haemorrhage [None]
  - Dysmenorrhoea [Recovered/Resolved]
  - Mood swings [None]
  - Off label use [None]
  - Product use in unapproved indication [None]
  - Abnormal withdrawal bleeding [Recovered/Resolved]
  - Crying [None]
  - Dysmenorrhoea [Recovering/Resolving]
  - Illness [None]
  - Suicidal ideation [Recovering/Resolving]
  - Feeling abnormal [None]
  - Depressed mood [Recovering/Resolving]

NARRATIVE: CASE EVENT DATE: 2019
